FAERS Safety Report 8417358-9 (Version None)
Quarter: 2012Q2

REPORT INFORMATION
  Report Type: 
  Country: None (occurrence: None)
  Receive Date: 20120606
  Receipt Date: 20120530
  Transmission Date: 20120825
  Serious: Yes (Other)
  Sender: FDA-Public Use
  Company Number: US-MPIJNJ-2012-03906

PATIENT

DRUGS (6)
  1. VELCADE [Suspect]
     Indication: AMYLOIDOSIS
     Dosage: 1.3 MG/M2, CYCLIC
     Route: 042
  2. MELPHALAN HYDROCHLORIDE [Suspect]
     Indication: AMYLOIDOSIS
     Dosage: 9 MG/M2, CYCLIC
     Route: 048
  3. DEXAMETHASONE [Suspect]
     Indication: AMYLOIDOSIS
     Dosage: 40 MG, CYCLIC
  4. DEXAMETHASONE [Suspect]
     Dosage: 20 MG, CYCLIC
  5. MELPHALAN HYDROCHLORIDE [Suspect]
     Dosage: 6 MG/M2, CYCLIC
     Route: 048
  6. VELCADE [Suspect]
     Dosage: 1.0 MG/M2, CYCLIC
     Route: 042

REACTIONS (1)
  - CARDIOMYOPATHY [None]
